FAERS Safety Report 9333256 (Version 1)
Quarter: 2013Q2

REPORT INFORMATION
  Report Type: Spontaneous
  Country: US (occurrence: US)
  Receive Date: 20130606
  Receipt Date: 20130606
  Transmission Date: 20140414
  Serious: Yes (Other)
  Sender: FDA-Public Use
  Company Number: US-JNJFOC-20130522800

PATIENT
  Age: 39 Year
  Sex: Male

DRUGS (1)
  1. REMICADE [Suspect]
     Indication: CROHN^S DISEASE
     Route: 042

REACTIONS (6)
  - Blood triglycerides increased [Unknown]
  - Fatigue [Unknown]
  - Dyspnoea [Unknown]
  - Erythema [Unknown]
  - Headache [Unknown]
  - Eye pain [Unknown]
